FAERS Safety Report 24292629 (Version 1)
Quarter: 2024Q3

REPORT INFORMATION
  Report Type: Spontaneous
  Country: DE (occurrence: DE)
  Receive Date: 20240906
  Receipt Date: 20240906
  Transmission Date: 20241017
  Serious: Yes (Other)
  Sender: TEVA
  Company Number: DE-TEVA-VS-3239320

PATIENT
  Age: 55 Year
  Sex: Female
  Weight: 130 kg

DRUGS (14)
  1. SULFAMETHOXAZOLE\TRIMETHOPRIM [Suspect]
     Active Substance: SULFAMETHOXAZOLE\TRIMETHOPRIM
     Indication: Cystitis
     Dosage: COTRIM FORTE-RATIOPHARM 800 MG/160 MG
     Route: 048
     Dates: start: 20240528, end: 20240828
  2. PREGABALIN [Concomitant]
     Active Substance: PREGABALIN
     Indication: Product used for unknown indication
     Dosage: PREGABALIN 150 0-0-1
  3. PREGABALIN [Concomitant]
     Active Substance: PREGABALIN
     Indication: Product used for unknown indication
     Dosage: 1A PHARMA, DOSAGE: 0,0,1,0
  4. LEVOTHYROXINE SODIUM [Concomitant]
     Active Substance: LEVOTHYROXINE SODIUM
     Indication: Product used for unknown indication
     Dosage: 1A PHARMA, DOSAGE; 1, 0, 0, 0
  5. CHOLECALCIFEROL [Concomitant]
     Active Substance: CHOLECALCIFEROL
     Indication: Product used for unknown indication
     Dosage: DOSAGE: 1,0,0,0, EVERY 14 DAYS
  6. OMEPRAZOLE [Concomitant]
     Active Substance: OMEPRAZOLE
     Indication: Product used for unknown indication
     Dosage: DOSAGE: 0,0,1,0
  7. PROMETHAZINE [Concomitant]
     Active Substance: PROMETHAZINE HYDROCHLORIDE
     Indication: Anxiety
     Dosage: NEURAXPHARM, FORM: DROPS, UP TO 15 DROPS IF REQUIRED)
  8. MOXONIDINE [Concomitant]
     Active Substance: MOXONIDINE
     Indication: Product used for unknown indication
     Dosage: 1-A PHARMA, DOSAGE: 1.0.1.0)
  9. Novalgin [Concomitant]
     Indication: Product used for unknown indication
  10. HYDROMORPHONE [Concomitant]
     Active Substance: HYDROMORPHONE
     Indication: Product used for unknown indication
     Dosage: 1A PHARMA, RETARD, PROLONGED RELEASE CAPSULES, DOSAGE: 0,0,0,1
  11. NABIXIMOLS [Concomitant]
     Active Substance: NABIXIMOLS
     Indication: Product used for unknown indication
     Dosage: SPRAY FOR USE IN THE ORAL CAVITY; STRENGTH: 38.5 MG, 41 MG, DOSAGE: 2,0,6,0
     Route: 048
     Dates: start: 20210401
  12. BENSERAZIDE\LEVODOPA [Concomitant]
     Active Substance: BENSERAZIDE\LEVODOPA
     Indication: Product used for unknown indication
     Dosage: 100MG/25MG, RETARDED HARD CAPSULES, FORM: TABLET, DOSAGE: 0,0,1,5, 0
  13. Spasmex [Concomitant]
     Indication: Product used for unknown indication
     Dosage: SPASMEX 15, DOSAGE: 0,0,1,0
  14. TOCILIZUMAB [Concomitant]
     Active Substance: TOCILIZUMAB
     Indication: Product used for unknown indication
     Dosage: DRIP
     Dates: start: 20230615

REACTIONS (1)
  - Polyneuropathy [Not Recovered/Not Resolved]

NARRATIVE: CASE EVENT DATE: 20240717
